FAERS Safety Report 4366692-0 (Version None)
Quarter: 2004Q2

REPORT INFORMATION
  Report Type: 
  Country: None (occurrence: None)
  Receive Date: 20040527
  Receipt Date: 20030606
  Transmission Date: 20050107
  Serious: Yes (Hospitalization)
  Sender: FDA-Public Use
  Company Number: US-AMGEN-US039529

PATIENT
  Sex: Female

DRUGS (9)
  1. ENBREL [Suspect]
     Indication: RHEUMATOID ARTHRITIS
     Route: 058
     Dates: start: 20011026, end: 20030226
  2. ARAVA [Suspect]
     Route: 048
     Dates: start: 19990601, end: 20030226
  3. PREDNISONE [Concomitant]
     Dates: start: 19990101
  4. FOSAMAX [Concomitant]
     Dates: start: 20000101
  5. PREVACID [Concomitant]
     Dates: start: 19990101
  6. LIPITOR [Concomitant]
     Dates: start: 19990101
  7. DARVOCET-N 100 [Concomitant]
     Dates: start: 19990101
  8. MOTRIN [Concomitant]
     Dates: start: 19990101
  9. ZYRTEC [Concomitant]
     Dates: start: 19990101

REACTIONS (9)
  - ATHEROSCLEROSIS [None]
  - FINGER AMPUTATION [None]
  - GANGRENE [None]
  - ISCHAEMIA [None]
  - LEG AMPUTATION [None]
  - LOCALISED INFECTION [None]
  - PERIPHERAL VASCULAR DISORDER [None]
  - VASCULAR STENOSIS [None]
  - VASCULITIS [None]
